FAERS Safety Report 13548967 (Version 2)
Quarter: 2017Q3

REPORT INFORMATION
  Report Type: Spontaneous
  Country: US (occurrence: US)
  Receive Date: 20170516
  Receipt Date: 20170807
  Transmission Date: 20171127
  Serious: No
  Sender: FDA-Public Use
  Company Number: US-PFIZER INC-2017209306

PATIENT
  Age: 58 Year
  Sex: Male

DRUGS (2)
  1. CYMBALTA [Concomitant]
     Active Substance: DULOXETINE HYDROCHLORIDE
     Indication: DEPRESSION
     Dosage: 60 MG, DAILY
     Dates: start: 20130213, end: 20130829
  2. EFFEXOR XR [Suspect]
     Active Substance: VENLAFAXINE HYDROCHLORIDE
     Indication: DEPRESSION
     Dosage: 150 MG, 1X/DAY
     Route: 048
     Dates: start: 20130829, end: 20131024

REACTIONS (3)
  - Drug hypersensitivity [Unknown]
  - Abdominal discomfort [Unknown]
  - Influenza like illness [Unknown]

NARRATIVE: CASE EVENT DATE: 20131024
